FAERS Safety Report 9802565 (Version 1)
Quarter: 2014Q1

REPORT INFORMATION
  Report Type: Spontaneous
  Country: US (occurrence: US)
  Receive Date: 20140108
  Receipt Date: 20140108
  Transmission Date: 20141002
  Serious: No
  Sender: FDA-Public Use
  Company Number: US-BAYER-2014-002914

PATIENT
  Sex: Male
  Weight: 84 kg

DRUGS (2)
  1. ALEVE TABLET [Suspect]
     Indication: ARTHRITIS
     Dosage: 2 DF, PRN
     Route: 048
     Dates: start: 2007
  2. BAYER ASPIRIN REGIMEN ADULT LOW STRENGTH [Concomitant]

REACTIONS (1)
  - Incorrect drug administration duration [None]
